FAERS Safety Report 4824700-4 (Version None)
Quarter: 2005Q4

REPORT INFORMATION
  Report Type: 
  Country: None (occurrence: None)
  Receive Date: 20051110
  Receipt Date: 20050901
  Transmission Date: 20060501
  Serious: Yes (Other)
  Sender: FDA-Public Use
  Company Number: 2005UW13002

PATIENT
  Age: 49 Year
  Sex: Female
  Weight: 50.9 kg

DRUGS (12)
  1. SEROQUEL [Suspect]
     Indication: BIPOLAR I DISORDER
     Dosage: 25MG GRADUAL INCREASE TO 200MG
     Route: 048
     Dates: start: 20040824, end: 20040910
  2. SEROQUEL [Suspect]
     Route: 048
     Dates: start: 20050901
  3. WELLBUTRIN SR [Suspect]
     Indication: DEPRESSION
     Route: 048
     Dates: start: 20030722, end: 20030728
  4. WELLBUTRIN SR [Suspect]
     Route: 048
     Dates: start: 20030729
  5. WELLBUTRIN SR [Suspect]
     Dosage: 200MG AM, 1/2 200MG TABLET AT NIGHT
     Route: 048
     Dates: end: 20040919
  6. SYNTHROID [Concomitant]
     Indication: HYPOTHYROIDISM
     Route: 048
     Dates: start: 19980101
  7. DOXEPIN HCL [Concomitant]
     Indication: DEPRESSION
     Route: 048
     Dates: start: 20040108, end: 20041112
  8. DOXEPIN HCL [Concomitant]
     Indication: INSOMNIA
     Route: 048
     Dates: start: 20040108, end: 20041112
  9. ZOLPIDEM TARTRATE [Concomitant]
     Indication: INSOMNIA
     Route: 048
     Dates: start: 20030701, end: 20041107
  10. LORAZEPAM [Concomitant]
     Indication: ANXIETY
     Route: 048
     Dates: start: 20040630, end: 20041001
  11. MENEST [Concomitant]
     Indication: MENOPAUSE
     Route: 048
  12. ZOMIG [Concomitant]
     Indication: MIGRAINE
     Dosage: 1-2 TABL Q6-8 HRS PRN
     Route: 048

REACTIONS (15)
  - AFFECTIVE DISORDER [None]
  - AMNESIA [None]
  - AURA [None]
  - BIPOLAR II DISORDER [None]
  - CONFUSIONAL STATE [None]
  - CONVULSION [None]
  - FALL [None]
  - FATIGUE [None]
  - LOSS OF CONSCIOUSNESS [None]
  - MEMORY IMPAIRMENT [None]
  - NAUSEA [None]
  - NECK PAIN [None]
  - PARAESTHESIA [None]
  - TONIC CONVULSION [None]
  - TREMOR [None]
